FAERS Safety Report 25512222 (Version 3)
Quarter: 2025Q3

REPORT INFORMATION
  Report Type: Report from Study
  Country: US (occurrence: US)
  Receive Date: 20250703
  Receipt Date: 20250811
  Transmission Date: 20251020
  Serious: No
  Sender: ROCHE
  Company Number: US-ROCHE-10000326833

PATIENT
  Age: 56 Year
  Sex: Female
  Weight: 81.6 kg

DRUGS (34)
  1. MYCOPHENOLATE MOFETIL [Suspect]
     Active Substance: MYCOPHENOLATE MOFETIL
     Indication: Lung transplant
     Dosage: 500MG 2 TABLETS BID
     Route: 065
  2. ZOFRAN [Concomitant]
     Active Substance: ONDANSETRON HYDROCHLORIDE
     Route: 048
  3. IMODIUM [Concomitant]
     Active Substance: LOPERAMIDE HYDROCHLORIDE
  4. TACROLIMUS [Concomitant]
     Active Substance: TACROLIMUS
     Route: 048
  5. MYFORTIC [Concomitant]
     Active Substance: MYCOPHENOLATE SODIUM
     Dosage: DECREASED TO 360 MG BID
  6. PREDNISONE [Concomitant]
     Active Substance: PREDNISONE
  7. TYLENOL [Concomitant]
     Active Substance: ACETAMINOPHEN
     Indication: Pain
  8. CLONAZEPAM [Concomitant]
     Active Substance: CLONAZEPAM
     Indication: Anxiety
  9. MECLIZINE HYDROCHLORIDE [Concomitant]
     Active Substance: MECLIZINE HYDROCHLORIDE
  10. ASPIRIN [Concomitant]
     Active Substance: ASPIRIN
  11. OLANZAPINE [Concomitant]
     Active Substance: OLANZAPINE
     Indication: Agitation
  12. KLONOPIN [Concomitant]
     Active Substance: CLONAZEPAM
  13. MELATONIN [Concomitant]
     Active Substance: MELATONIN
  14. ZYPREXA [Concomitant]
     Active Substance: OLANZAPINE
  15. METOPROLOL [Concomitant]
     Active Substance: METOPROLOL
  16. AMLODIPINE [Concomitant]
     Active Substance: AMLODIPINE BESYLATE
  17. RABEPRAZOLE [Concomitant]
     Active Substance: RABEPRAZOLE
  18. LOPERAMIDE [Concomitant]
     Active Substance: LOPERAMIDE
  19. LOKELMA [SODIUM ZIRCONIUM CYCLOSILICATE] [Concomitant]
  20. MAGNESIUM CHLORIDE [Concomitant]
     Active Substance: MAGNESIUM CHLORIDE
  21. SODIUM BICARBONATE [Concomitant]
     Active Substance: SODIUM BICARBONATE
     Dosage: 1200 TID
  22. METFORMIN [Concomitant]
     Active Substance: METFORMIN HYDROCHLORIDE
     Route: 048
  23. UNSPECIFIED INGREDIENT [Concomitant]
     Active Substance: UNSPECIFIED INGREDIENT
     Dosage: 400-80 MG PER TABLET
     Route: 048
  24. ALBUTEROL [Concomitant]
     Active Substance: ALBUTEROL
     Indication: Wheezing
     Dosage: 2 PUFFS
     Route: 055
  25. AMLODIPINE [Concomitant]
     Active Substance: AMLODIPINE BESYLATE
     Route: 048
  26. ASCORBIC ACID [Concomitant]
     Active Substance: ASCORBIC ACID
  27. ATORVASTATIN [Concomitant]
     Active Substance: ATORVASTATIN
     Route: 048
  28. AZITHROMYCIN [Concomitant]
     Active Substance: AZITHROMYCIN
     Route: 048
  29. CHOLECALCIFEROL [Concomitant]
     Active Substance: CHOLECALCIFEROL
     Route: 048
  30. FLUTICASONE [Concomitant]
     Active Substance: FLUTICASONE
     Route: 045
  31. METOPROLOL TARTRATE [Concomitant]
     Active Substance: METOPROLOL TARTRATE
     Route: 048
  32. LORAZEPAM [Concomitant]
     Active Substance: LORAZEPAM
  33. SODIUM ZIRCONIUM CYCLOSILICATE [Concomitant]
     Active Substance: SODIUM ZIRCONIUM CYCLOSILICATE
  34. CEFAZOLIN [Concomitant]
     Active Substance: CEFAZOLIN

REACTIONS (2)
  - Off label use [Unknown]
  - No adverse event [Unknown]
